FAERS Safety Report 5899308-2 (Version None)
Quarter: 2008Q3

REPORT INFORMATION
  Report Type: 
  Country: None (occurrence: None)
  Receive Date: 20080909
  Receipt Date: 20071019
  Transmission Date: 20090109
  Serious: Yes (Other)
  Sender: FDA-Public Use
  Company Number: US-WYE-H00812207

PATIENT
  Age: 100 Year
  Sex: Female
  Weight: 48.12 kg

DRUGS (7)
  1. ADVIL [Suspect]
     Indication: ARTHRALGIA
     Dosage: 2 CAPSULE 1X PER 1 DAY, ORAL
     Route: 048
     Dates: start: 20071001, end: 20071018
  2. PREMARIN [Concomitant]
  3. ACIPHEX [Concomitant]
  4. NORVASC [Concomitant]
  5. DETROL [Concomitant]
  6. ASPIRIN [Concomitant]
  7. POTASSIUM CHLORIDE [Concomitant]

REACTIONS (3)
  - COUGH [None]
  - DYSPHONIA [None]
  - ORAL DISCOMFORT [None]
